FAERS Safety Report 10681336 (Version 1)
Quarter: 2014Q4

REPORT INFORMATION
  Report Type: Spontaneous
  Country: CA (occurrence: CA)
  Receive Date: 20141230
  Receipt Date: 20141230
  Transmission Date: 20150529
  Serious: Yes (Other)
  Sender: FDA-Public Use
  Company Number: CA-BEH-2014047519

PATIENT
  Age: 67 Year
  Sex: Male
  Weight: 100 kg

DRUGS (15)
  1. HIZENTRA [Suspect]
     Active Substance: HUMAN IMMUNOGLOBULIN G
     Route: 058
     Dates: start: 20130426, end: 20130726
  2. PAN-PANTOPRAZOLE [Concomitant]
  3. TEVA-HYDRAZIDE [Concomitant]
  4. APO-GLICLAZIDE MR [Concomitant]
  5. INSULIN [Concomitant]
     Active Substance: INSULIN NOS
  6. HIZENTRA [Suspect]
     Active Substance: HUMAN IMMUNOGLOBULIN G
     Route: 058
     Dates: start: 20130426, end: 20130726
  7. METFORMIN [Concomitant]
     Active Substance: METFORMIN HYDROCHLORIDE
  8. CO-ENALAPRIL [Concomitant]
     Active Substance: ENALAPRIL MALEATE\HYDROCHLOROTHIAZIDE
  9. MYLAN-AZATHIOPRINE [Concomitant]
     Dates: start: 201203
  10. HIZENTRA [Suspect]
     Active Substance: HUMAN IMMUNOGLOBULIN G
     Route: 058
     Dates: start: 20130426, end: 20130726
  11. APO-FERGLUC [Concomitant]
  12. EZETROL [Concomitant]
     Active Substance: EZETIMIBE
  13. EURO-FER [Concomitant]
  14. HIZENTRA [Suspect]
     Active Substance: HUMAN IMMUNOGLOBULIN G
     Indication: CHRONIC INFLAMMATORY DEMYELINATING POLYRADICULONEUROPATHY
     Route: 058
     Dates: start: 20130426, end: 20130726
  15. TIAZAC [Concomitant]
     Active Substance: DILTIAZEM HYDROCHLORIDE

REACTIONS (6)
  - Hepatic cirrhosis [Recovered/Resolved]
  - Splenomegaly [Recovered/Resolved]
  - Platelet aggregation [Recovered/Resolved]
  - Thrombocytopenia [Recovered/Resolved]
  - Anaemia macrocytic [Recovered/Resolved]
  - Off label use [Recovered/Resolved]

NARRATIVE: CASE EVENT DATE: 20130426
